FAERS Safety Report 25198367 (Version 3)
Quarter: 2025Q2

REPORT INFORMATION
  Report Type: Report from Study
  Country: US (occurrence: US)
  Receive Date: 20250415
  Receipt Date: 20250512
  Transmission Date: 20250717
  Serious: Yes (Other)
  Sender: JAZZ
  Company Number: US-JAZZ PHARMACEUTICALS-2025-US-007331

PATIENT
  Age: 2 Year
  Sex: Male
  Weight: 14.966 kg

DRUGS (12)
  1. EPIDIOLEX [Suspect]
     Active Substance: CANNABIDIOL
     Indication: Lennox-Gastaut syndrome
     Dosage: 0.2 MILLILITER, BID (2.98MG/KG/DAY)
     Route: 048
     Dates: start: 20250316
  2. EPIDIOLEX [Suspect]
     Active Substance: CANNABIDIOL
     Dosage: 0.35 MILLILITER, BID (5.23MG/KG/DAY)
     Route: 048
     Dates: start: 20250316
  3. EPIDIOLEX [Suspect]
     Active Substance: CANNABIDIOL
     Dosage: 13 MILLIGRAM/KILOGRAM/DAY, BID
     Route: 048
  4. EPIDIOLEX [Suspect]
     Active Substance: CANNABIDIOL
     Dosage: 1 MILLILITER, BID
     Dates: start: 20250424
  5. EPIDIOLEX [Suspect]
     Active Substance: CANNABIDIOL
     Dosage: 1.1 MILLILITER, BID
  6. EPIDIOLEX [Suspect]
     Active Substance: CANNABIDIOL
     Dosage: 1.4 MILLILITER, BID
  7. EPIDIOLEX [Suspect]
     Active Substance: CANNABIDIOL
     Route: 048
  8. VALPROIC ACID [Concomitant]
     Active Substance: VALPROIC ACID
     Indication: Product used for unknown indication
  9. VITAMIN B6 [Concomitant]
     Active Substance: PYRIDOXINE HYDROCHLORIDE
     Indication: Product used for unknown indication
  10. CALCIUM\VITAMIN D [Concomitant]
     Active Substance: CALCIUM\VITAMIN D
     Indication: Product used for unknown indication
  11. MULTIVITAMIN IRON [Concomitant]
     Indication: Product used for unknown indication
  12. KEPPRA [Concomitant]
     Active Substance: LEVETIRACETAM
     Indication: Product used for unknown indication

REACTIONS (11)
  - Seizure [Not Recovered/Not Resolved]
  - Productive cough [Not Recovered/Not Resolved]
  - Seizure [Not Recovered/Not Resolved]
  - Erythema [Not Recovered/Not Resolved]
  - Irritability [Recovering/Resolving]
  - Gastroenteritis viral [Not Recovered/Not Resolved]
  - Weight increased [Unknown]
  - Sputum discoloured [Unknown]
  - Vomiting [Unknown]
  - Intentional product use issue [Unknown]
  - Wrong technique in product usage process [Unknown]

NARRATIVE: CASE EVENT DATE: 20250317
